FAERS Safety Report 9370148 (Version 1)
Quarter: 2013Q2

REPORT INFORMATION
  Report Type: Spontaneous
  Country: CN (occurrence: CN)
  Receive Date: 20130626
  Receipt Date: 20130626
  Transmission Date: 20140414
  Serious: Yes (Other)
  Sender: FDA-Public Use
  Company Number: PHHY2013CN064161

PATIENT
  Age: 15 Year
  Sex: Female

DRUGS (4)
  1. PREDNISONE [Suspect]
     Indication: AUTOIMMUNE THROMBOCYTOPENIA
     Dosage: 40 MG, UNK
  2. PREDNISONE [Suspect]
     Dosage: 10 MG, UNK
  3. DEXAMETHASONE [Suspect]
  4. DEXAMETHASONE [Suspect]
     Dosage: 10 MG, UNK

REACTIONS (5)
  - Idiopathic thrombocytopenic purpura [Unknown]
  - Menorrhagia [Recovered/Resolved]
  - Cushing^s syndrome [Unknown]
  - Ecchymosis [Unknown]
  - Disease recurrence [Unknown]
